FAERS Safety Report 15283928 (Version 1)
Quarter: 2018Q3

REPORT INFORMATION
  Report Type: Spontaneous
  Country: US (occurrence: US)
  Receive Date: 20180801
  Receipt Date: 20180801
  Transmission Date: 20181010
  Serious: Yes (Other)
  Sender: FDA-Public Use
  Company Number: None

PATIENT
  Age: 50 Year
  Sex: Female
  Weight: 54 kg

DRUGS (2)
  1. QVAR [Suspect]
     Active Substance: BECLOMETHASONE DIPROPIONATE
     Indication: ASTHMA
     Dosage: ?          QUANTITY:120 INHALATION(S);?
     Route: 055
     Dates: start: 20180706
  2. ALBUTEROL. [Concomitant]
     Active Substance: ALBUTEROL

REACTIONS (4)
  - Product substitution issue [None]
  - Manufacturing materials issue [None]
  - Asthma [None]
  - Therapy change [None]

NARRATIVE: CASE EVENT DATE: 20180718
